FAERS Safety Report 18312233 (Version 1)
Quarter: 2020Q3

REPORT INFORMATION
  Report Type: Spontaneous
  Country: CA (occurrence: CA)
  Receive Date: 20200925
  Receipt Date: 20200925
  Transmission Date: 20201103
  Serious: Yes (Hospitalization, Disabling)
  Sender: FDA-Public Use
  Company Number: CA-ROCHE-2683815

PATIENT
  Age: 61 Year
  Sex: Female
  Weight: 62.2 kg

DRUGS (4)
  1. LIDOCAINE. [Concomitant]
     Active Substance: LIDOCAINE
  2. TETRACAINE. [Concomitant]
     Active Substance: TETRACAINE
  3. POVIDONE?IODINE. [Concomitant]
     Active Substance: POVIDONE-IODINE
  4. AVASTIN [Suspect]
     Active Substance: BEVACIZUMAB
     Indication: EYE HAEMORRHAGE
     Dosage: SOLUTION INTRAVENOUS
     Route: 031

REACTIONS (6)
  - Blindness [Not Recovered/Not Resolved]
  - Eye injury [Not Recovered/Not Resolved]
  - Vitreous haemorrhage [Not Recovered/Not Resolved]
  - Eye operation [Not Recovered/Not Resolved]
  - Endophthalmitis [Not Recovered/Not Resolved]
  - Pain [Not Recovered/Not Resolved]
